FAERS Safety Report 9484572 (Version 2)
Quarter: 2013Q4

REPORT INFORMATION
  Report Type: Spontaneous
  Country: US (occurrence: US)
  Receive Date: 20130828
  Receipt Date: 20131022
  Transmission Date: 20140711
  Serious: Yes (Other)
  Sender: FDA-Public Use
  Company Number: US-BAUSCH-BL-2013-004764

PATIENT
  Age: 80 Year
  Sex: Male

DRUGS (2)
  1. DORZOLAMIDE HYDROCHLORIDE AND TIMOLOL MALEATE OPHTHALMIC SOLUTION 2%/0 [Suspect]
     Indication: GLAUCOMA
     Dosage: 1 DROP; TWICE DAILY; RIGHT EYE
     Route: 047
     Dates: start: 201305, end: 20130821
  2. DORZOLAMIDE HYDROCHLORIDE AND TIMOLOL MALEATE OPHTHALMIC SOLUTION 2%/0 [Suspect]
     Dosage: 1 DROP; TWICE DAILY; LEFT EYE
     Route: 047
     Dates: start: 201305, end: 20130821

REACTIONS (1)
  - Bundle branch block right [Not Recovered/Not Resolved]
